FAERS Safety Report 8604141-4 (Version None)
Quarter: 2012Q3

REPORT INFORMATION
  Report Type: 
  Country: None (occurrence: None)
  Receive Date: 20120806
  Receipt Date: 20120806
  Transmission Date: 20120928
  Serious: Yes (Other)
  Sender: FDA-Public Use
  Company Number: JP-2012-15842

PATIENT
  Age: 60 Year
  Sex: Male

DRUGS (2)
  1. ASPIRIN [Suspect]
  2. PLETAL [Suspect]
     Dosage: ORAL
     Route: 048

REACTIONS (1)
  - COLITIS MICROSCOPIC [None]
